FAERS Safety Report 14662759 (Version 1)
Quarter: 2018Q1

REPORT INFORMATION
  Report Type: Spontaneous
  Country: TW (occurrence: TW)
  Receive Date: 20180321
  Receipt Date: 20180321
  Transmission Date: 20180509
  Serious: Yes (Death, Hospitalization, Other)
  Sender: FDA-Public Use
  Company Number: TW-SUN PHARMACEUTICAL INDUSTRIES LTD-2018RR-166066

PATIENT
  Age: 65 Year
  Sex: Male

DRUGS (10)
  1. PREDNISOLONE. [Suspect]
     Active Substance: PREDNISOLONE
     Indication: HISTIOCYTOSIS HAEMATOPHAGIC
     Dosage: 10 MG, DAILY
     Route: 048
  2. PREDNISOLONE. [Suspect]
     Active Substance: PREDNISOLONE
     Indication: STILL^S DISEASE
     Dosage: 55 MG, DAILY
     Route: 065
  3. HYDROCORTISONE. [Suspect]
     Active Substance: HYDROCORTISONE
     Indication: HISTIOCYTOSIS HAEMATOPHAGIC
     Dosage: 200 MG
     Route: 042
  4. METHOTREXATE. [Suspect]
     Active Substance: METHOTREXATE
     Indication: STILL^S DISEASE
     Dosage: 7.5 MG, 1/WEEK
     Route: 065
  5. HYDROCORTISONE. [Suspect]
     Active Substance: HYDROCORTISONE
     Indication: HISTIOCYTOSIS HAEMATOPHAGIC
  6. PREDNISOLONE. [Suspect]
     Active Substance: PREDNISOLONE
     Indication: HISTIOCYTOSIS HAEMATOPHAGIC
  7. TIGECYCLINE. [Suspect]
     Active Substance: TIGECYCLINE
     Indication: HISTIOCYTOSIS HAEMATOPHAGIC
     Dosage: 50 MG, PER 12 H
     Route: 042
  8. FLUMARIN [Concomitant]
     Active Substance: FLOMOXEF SODIUM
     Indication: PRODUCT USED FOR UNKNOWN INDICATION
     Dosage: 1.0 G, PER 8 HOURS
     Route: 042
  9. TIGECYCLINE. [Suspect]
     Active Substance: TIGECYCLINE
     Indication: HISTIOCYTOSIS HAEMATOPHAGIC
  10. ISONIAZID. [Concomitant]
     Active Substance: ISONIAZID
     Indication: LATENT TUBERCULOSIS
     Dosage: UNK
     Route: 065

REACTIONS (8)
  - Symptom masked [Fatal]
  - Peritonitis [Fatal]
  - Necrotising fasciitis [Fatal]
  - Cytomegalovirus infection [Fatal]
  - Bone marrow failure [Fatal]
  - Abdominal wall abscess [Fatal]
  - Septic shock [Fatal]
  - Haematoma [Fatal]
